FAERS Safety Report 19884448 (Version 1)
Quarter: 2021Q3

REPORT INFORMATION
  Report Type: Spontaneous
  Country: US (occurrence: US)
  Receive Date: 20210923
  Receipt Date: 20210923
  Transmission Date: 20211014
  Serious: No
  Sender: FDA-Public Use
  Company Number: None

PATIENT
  Age: 51 Year
  Sex: Female

DRUGS (1)
  1. CAPECITABINE TAB 150MG [Suspect]
     Active Substance: CAPECITABINE
     Route: 048
     Dates: start: 202108

REACTIONS (6)
  - Anaemia [None]
  - Paraesthesia [None]
  - Red blood cell count decreased [None]
  - Vitamin B12 decreased [None]
  - COVID-19 [None]
  - Lymphocyte count decreased [None]

NARRATIVE: CASE EVENT DATE: 20210920
